FAERS Safety Report 22609002 (Version 1)
Quarter: 2023Q2

REPORT INFORMATION
  Report Type: Spontaneous
  Country: US (occurrence: US)
  Receive Date: 20230616
  Receipt Date: 20230616
  Transmission Date: 20230721
  Serious: No
  Sender: FDA-Public Use
  Company Number: US-JNJFOC-20230628788

PATIENT
  Age: 51 Year
  Sex: Female
  Weight: 44 kg

DRUGS (9)
  1. UPTRAVI [Suspect]
     Active Substance: SELEXIPAG
     Indication: Pulmonary arterial hypertension
     Route: 048
  2. TYVASO [Suspect]
     Active Substance: TREPROSTINIL
     Indication: Pulmonary arterial hypertension
     Route: 055
  3. TYVASO [Suspect]
     Active Substance: TREPROSTINIL
     Route: 055
  4. TYVASO [Suspect]
     Active Substance: TREPROSTINIL
     Route: 055
  5. TYVASO [Suspect]
     Active Substance: TREPROSTINIL
     Route: 055
     Dates: start: 20230227
  6. TYVASO [Suspect]
     Active Substance: TREPROSTINIL
     Route: 055
  7. OPSUMIT [Concomitant]
     Active Substance: MACITENTAN
     Route: 048
     Dates: start: 20220824
  8. OFEV [Concomitant]
     Active Substance: NINTEDANIB
     Route: 065
     Dates: start: 20220824
  9. SILDENAFIL CITRATE [Concomitant]
     Active Substance: SILDENAFIL CITRATE

REACTIONS (7)
  - Cough [Unknown]
  - Product residue present [Unknown]
  - Oropharyngeal pain [Unknown]
  - Oral pain [Unknown]
  - Dyspnoea [Unknown]
  - Arthritis [Unknown]
  - Nasopharyngitis [Unknown]
